FAERS Safety Report 7441508-4 (Version None)
Quarter: 2011Q2

REPORT INFORMATION
  Report Type: 
  Country: None (occurrence: None)
  Receive Date: 20110421
  Receipt Date: 20110407
  Transmission Date: 20111010
  Serious: Yes (Other)
  Sender: FDA-Public Use
  Company Number: 2011AP000681

PATIENT
  Age: 78 Year
  Sex: Female

DRUGS (9)
  1. ALENDRONIC ACID [Concomitant]
  2. ALENDRONATE SODIUM [Suspect]
     Indication: PRODUCT USED FOR UNKNOWN INDICATION
     Dosage: 70 MG QW;
     Dates: start: 20110330
  3. PREDNISOLONE [Concomitant]
  4. LEVOTHYROXINE SODIUM [Concomitant]
  5. ALBUTEROL SULFATE AUTOHALER [Concomitant]
  6. FLUTICASONE PROPIONATE W/SALMETEROL [Concomitant]
  7. TIOTROPIUM BROMIDE [Concomitant]
  8. TRAMADOL HCL [Concomitant]
  9. DOXYCYCLINE [Concomitant]

REACTIONS (1)
  - HICCUPS [None]
